FAERS Safety Report 9220936 (Version 2)
Quarter: 2013Q2

REPORT INFORMATION
  Report Type: Report from Study
  Country: US (occurrence: US)
  Receive Date: 20130409
  Receipt Date: 20130418
  Transmission Date: 20140414
  Serious: Yes (Hospitalization, Other)
  Sender: FDA-Public Use
  Company Number: US-ABBOTT-13P-163-1071413-00

PATIENT
  Age: 69 Year
  Sex: Male

DRUGS (2)
  1. HUMIRA [Suspect]
     Indication: PSORIASIS
     Dosage: SKIPPING NEXT SCHEDULED DOSE ON 10 APR 2013
     Route: 058
     Dates: start: 201303
  2. HUMIRA [Suspect]
     Indication: PSORIATIC ARTHROPATHY

REACTIONS (4)
  - Fall [Recovered/Resolved]
  - Hip fracture [Recovering/Resolving]
  - Confusional state [Not Recovered/Not Resolved]
  - Joint injury [Recovering/Resolving]
